FAERS Safety Report 6587986-4 (Version None)
Quarter: 2010Q1

REPORT INFORMATION
  Report Type: 
  Country: None (occurrence: None)
  Receive Date: 20100218
  Receipt Date: 20100215
  Transmission Date: 20100710
  Serious: Yes (Hospitalization)
  Sender: FDA-Public Use
  Company Number: CZ-BRISTOL-MYERS SQUIBB COMPANY-14978787

PATIENT
  Age: 25 Year
  Sex: Female
  Weight: 119 kg

DRUGS (3)
  1. ARIPIPRAZOLE [Suspect]
     Route: 048
     Dates: start: 20090715, end: 20090920
  2. RISPERIDONE [Suspect]
     Route: 048
     Dates: start: 20090904, end: 20090920
  3. DEPAKINE CHRONO [Concomitant]
     Route: 048
     Dates: start: 20050511

REACTIONS (1)
  - PSYCHOTIC DISORDER [None]
